FAERS Safety Report 8921482 (Version 2)
Quarter: 2012Q4

REPORT INFORMATION
  Report Type: 
  Country: JP (occurrence: JP)
  Receive Date: 20121121
  Receipt Date: 20121204
  Transmission Date: 20130627
  Serious: Yes (Hospitalization)
  Sender: FDA-Public Use
  Company Number: JP-009507513-1211JPN006973

PATIENT
  Age: 76 Year
  Sex: Male

DRUGS (5)
  1. MENESIT [Suspect]
     Dosage: 450 mg, qd
     Route: 048
  2. NOVAMIN (PROCHLORPERAZINE MALEATE) [Suspect]
     Dosage: 15 mg, qd
     Route: 048
  3. OXYCODONE HYDROCHLORIDE [Concomitant]
     Dosage: 10 mg, qd
     Route: 048
  4. ROPINIROLE HYDROCHLORIDE [Concomitant]
     Dosage: 5 mg, qd
     Route: 048
  5. SELEGILINE HYDROCHLORIDE [Concomitant]
     Dosage: 2.5 mg, qd
     Route: 048

REACTIONS (6)
  - Therapeutic response decreased [Recovering/Resolving]
  - Gait disturbance [Recovering/Resolving]
  - Somnolence [Recovering/Resolving]
  - Slow speech [Recovering/Resolving]
  - Somnolence [Recovering/Resolving]
  - Movement disorder [Recovering/Resolving]
